FAERS Safety Report 18335846 (Version 15)
Quarter: 2022Q3

REPORT INFORMATION
  Report Type: Spontaneous
  Country: US (occurrence: US)
  Receive Date: 20201001
  Receipt Date: 20220818
  Transmission Date: 20221027
  Serious: No
  Sender: FDA-Public Use
  Company Number: US-PFIZER INC-2020363652

PATIENT
  Age: 40 Year
  Sex: Male

DRUGS (6)
  1. EUCRISA [Suspect]
     Active Substance: CRISABOROLE
     Indication: Eczema
     Dosage: UNK, 2X/DAY
     Route: 061
     Dates: start: 20181118
  2. EUCRISA [Suspect]
     Active Substance: CRISABOROLE
     Dosage: APPLY TO AFFECTED AREAS DAILY FOR UPPER EXTREMITIES AND BACK
     Route: 061
     Dates: start: 2020
  3. EUCRISA [Suspect]
     Active Substance: CRISABOROLE
     Dosage: APPLY TO AFFECTED AREA DAILY ON UPPER EXTREMITIES AND TRUNK
     Route: 061
     Dates: start: 2021
  4. EUCRISA [Suspect]
     Active Substance: CRISABOROLE
     Dosage: UNK, 1X/DAY
  5. EUCRISA [Suspect]
     Active Substance: CRISABOROLE
     Dosage: ONE TO TWO TIMES; APPLY TO AFFECTED AREAS ON ARMS AND BACK
     Route: 061
  6. EUCRISA [Suspect]
     Active Substance: CRISABOROLE
     Dosage: APPLY TO AFFECTED AREA AS NEEDED
     Route: 061

REACTIONS (4)
  - Off label use [Unknown]
  - Condition aggravated [Unknown]
  - Illness [Unknown]
  - Speech disorder [Unknown]

NARRATIVE: CASE EVENT DATE: 20200901
